FAERS Safety Report 22993698 (Version 3)
Quarter: 2023Q4

REPORT INFORMATION
  Report Type: Spontaneous
  Country: US (occurrence: US)
  Receive Date: 20230927
  Receipt Date: 20231205
  Transmission Date: 20240110
  Serious: No
  Sender: FDA-Public Use
  Company Number: US-BAYER-2023A123559

PATIENT
  Age: 14 Year
  Sex: Male

DRUGS (4)
  1. JIVI [Suspect]
     Active Substance: DAMOCTOCOG ALFA PEGOL
     Indication: Factor VIII deficiency
     Dosage: 2000 UNITS, BIW
     Route: 042
     Dates: start: 202211
  2. JIVI [Suspect]
     Active Substance: DAMOCTOCOG ALFA PEGOL
     Indication: Factor VIII deficiency
     Dosage: 2000 UNITS , PRN
     Route: 042
  3. JIVI [Suspect]
     Active Substance: DAMOCTOCOG ALFA PEGOL
     Indication: Factor VIII deficiency
     Dosage: UNK, BIW
     Route: 042
     Dates: start: 202211
  4. JIVI [Suspect]
     Active Substance: DAMOCTOCOG ALFA PEGOL
     Indication: Factor VIII deficiency
     Dosage: UNK, PRN
     Route: 042

REACTIONS (1)
  - Joint swelling [None]

NARRATIVE: CASE EVENT DATE: 20230823
